FAERS Safety Report 22088101 (Version 1)
Quarter: 2023Q1

REPORT INFORMATION
  Report Type: Report from Study
  Country: US (occurrence: None)
  Receive Date: 20230313
  Receipt Date: 20230313
  Transmission Date: 20230417
  Serious: Yes (Death)
  Sender: FDA-Public Use
  Company Number: 2023A057317

PATIENT
  Age: 29444 Day

DRUGS (1)
  1. TAGRISSO [Suspect]
     Active Substance: OSIMERTINIB
     Route: 048
     Dates: start: 20220101, end: 20221229

REACTIONS (1)
  - Death [Fatal]

NARRATIVE: CASE EVENT DATE: 20221229
